FAERS Safety Report 5821555-6 (Version None)
Quarter: 2008Q3

REPORT INFORMATION
  Report Type: 
  Country: None (occurrence: None)
  Receive Date: 20080724
  Receipt Date: 20080721
  Transmission Date: 20090109
  Serious: Yes (Life-Threatening, Hospitalization)
  Sender: FDA-Public Use
  Company Number: PHHY2008FR14762

PATIENT
  Sex: Male

DRUGS (5)
  1. VALSARTAN AND HYDROCHLOROTHIAZIDE [Suspect]
     Indication: HYPERTENSION
     Route: 048
  2. CALCIPARINE [Suspect]
     Indication: MITRAL VALVE PROLAPSE
     Dosage: UNK
     Route: 058
     Dates: start: 20080408, end: 20080424
  3. KALEORID [Concomitant]
  4. TAHOR [Concomitant]
  5. SERETIDE ^ALLEN + HANBURYS LTD^ [Concomitant]

REACTIONS (8)
  - ACTIVATED PARTIAL THROMBOPLASTIN TIME PROLONGED [None]
  - ASTHENIA [None]
  - HYPERKALAEMIA [None]
  - INJECTION SITE ERYTHEMA [None]
  - PRURITUS [None]
  - RENAL FAILURE ACUTE [None]
  - SHOCK [None]
  - URTICARIA [None]
